FAERS Safety Report 24825583 (Version 3)
Quarter: 2025Q2

REPORT INFORMATION
  Report Type: Spontaneous
  Country: US (occurrence: US)
  Receive Date: 20250109
  Receipt Date: 20250531
  Transmission Date: 20250716
  Serious: Yes (Death, Other)
  Sender: STEMLINE THERAPEUTICS
  Company Number: US-STEMLINE THERAPEUTICS B.V.-2024-STML-US006834

PATIENT

DRUGS (2)
  1. ELZONRIS [Suspect]
     Active Substance: TAGRAXOFUSP-ERZS
     Indication: Blastic plasmacytoid dendritic cell neoplasia
     Dosage: 12 UG/KG, DAILY (DAY 1 TO DAY 3)
     Route: 042
     Dates: start: 20241203
  2. ELZONRIS [Suspect]
     Active Substance: TAGRAXOFUSP-ERZS
     Indication: Acute myeloid leukaemia
     Dosage: 12 UG/KG, DAILY (3RD DOSE OVER A 4 DAY PERIOD)
     Route: 042
     Dates: start: 20241205, end: 20241206

REACTIONS (3)
  - Venoocclusive disease [Fatal]
  - Capillary leak syndrome [Recovered/Resolved]
  - Off label use [Unknown]
